FAERS Safety Report 6400571-X (Version None)
Quarter: 2009Q4

REPORT INFORMATION
  Report Type: 
  Country: None (occurrence: None)
  Receive Date: 20091014
  Receipt Date: 20091007
  Transmission Date: 20100525
  Serious: Yes (Other)
  Sender: FDA-Public Use
  Company Number: BE-ABBOTT-09P-013-0599404-00

PATIENT
  Sex: Female

DRUGS (5)
  1. HUMIRA [Suspect]
     Indication: RHEUMATOID ARTHRITIS
  2. FELDENE [Concomitant]
     Indication: ARTHRITIS
     Dosage: APPROXIMATELY 3X/WEEK
  3. TRIAMCINOLONE [Concomitant]
     Indication: ARTHRITIS
     Dosage: DAILY
  4. SULAR [Concomitant]
     Indication: DRUG USE FOR UNKNOWN INDICATION
  5. SANDOZ CA-D [Concomitant]
     Indication: DRUG USE FOR UNKNOWN INDICATION

REACTIONS (3)
  - AUTOIMMUNE HEPATITIS [None]
  - POLYARTHRITIS [None]
  - PSORIASIS [None]
